FAERS Safety Report 4392228-4 (Version None)
Quarter: 2004Q3

REPORT INFORMATION
  Report Type: 
  Country: None (occurrence: None)
  Receive Date: 20040701
  Receipt Date: 20040614
  Transmission Date: 20050211
  Serious: Yes (Hospitalization)
  Sender: FDA-Public Use
  Company Number: F01200401380

PATIENT
  Age: 61 Year
  Sex: Male

DRUGS (2)
  1. (OXALIPLATIN) - SOLUTION - 130 MG/M2 [Suspect]
     Indication: NON-SMALL CELL LUNG CANCER
     Dosage: 130 MG/M2 Q2W, INTRAVENOUS NOS
     Route: 042
     Dates: start: 20040607, end: 20040607
  2. (GEMCITABINE) - SOLUTION - 1000 MG/M2 [Suspect]
     Dosage: 1000 MG/M2 Q3W, INTRAVENOUS NOS
     Route: 042
     Dates: start: 20040607, end: 20040607

REACTIONS (3)
  - ANOREXIA [None]
  - ARRHYTHMIA SUPRAVENTRICULAR [None]
  - WEIGHT DECREASED [None]
